FAERS Safety Report 11772472 (Version 1)
Quarter: 2015Q4

REPORT INFORMATION
  Report Type: Spontaneous
  Country: US (occurrence: US)
  Receive Date: 20151124
  Receipt Date: 20151124
  Transmission Date: 20160304
  Serious: No
  Sender: FDA-Public Use
  Company Number: US-GLAXOSMITHKLINE-US2015165856

PATIENT
  Age: 2 Year
  Sex: Female

DRUGS (1)
  1. NICORETTE MINT [Suspect]
     Active Substance: NICOTINE
     Indication: PRODUCT USED FOR UNKNOWN INDICATION
     Dosage: 2 MG,  ONE PIECE
     Dates: start: 20151119, end: 20151119

REACTIONS (5)
  - Fatigue [Recovered/Resolved]
  - Lethargy [Unknown]
  - Vomiting [Recovered/Resolved]
  - Pallor [Recovered/Resolved]
  - Accidental exposure to product by child [Unknown]

NARRATIVE: CASE EVENT DATE: 20151119
